FAERS Safety Report 5924955-9 (Version None)
Quarter: 2008Q4

REPORT INFORMATION
  Report Type: 
  Country: None (occurrence: None)
  Receive Date: 20081021
  Receipt Date: 20081013
  Transmission Date: 20090506
  Serious: Yes (Other)
  Sender: FDA-Public Use
  Company Number: FR-WYE-G02346608

PATIENT
  Sex: Female

DRUGS (7)
  1. TAZOCILLINE [Suspect]
     Indication: FEBRILE BONE MARROW APLASIA
     Route: 042
     Dates: start: 20080829, end: 20080905
  2. AMIKACIN [Concomitant]
     Indication: FEBRILE BONE MARROW APLASIA
     Dosage: UNKNOWN
     Route: 042
     Dates: start: 20080829, end: 20080902
  3. VITAMINE B1 B6 BAYER [Concomitant]
     Dosage: UNKNOWN
     Route: 048
  4. DURAGESIC-100 [Concomitant]
     Dosage: UNKNOWN
     Route: 062
  5. INIPOMP [Concomitant]
     Dosage: UNKNOWN
     Route: 048
  6. VANCOMYCIN HYDROCHLORIDE [Concomitant]
     Indication: FEBRILE BONE MARROW APLASIA
     Dosage: 2 G TOTAL DAILY
     Route: 042
     Dates: start: 20080829
  7. CALCIDIA [Concomitant]
     Dosage: UNKNOWN
     Route: 048

REACTIONS (3)
  - CONVULSION [None]
  - STAPHYLOCOCCAL BACTERAEMIA [None]
  - STAPHYLOCOCCAL INFECTION [None]
